FAERS Safety Report 14898948 (Version 1)
Quarter: 2018Q2

REPORT INFORMATION
  Report Type: Spontaneous
  Country: CA (occurrence: CA)
  Receive Date: 20180515
  Receipt Date: 20180515
  Transmission Date: 20180711
  Serious: Yes (Hospitalization)
  Sender: FDA-Public Use
  Company Number: CA-SUN PHARMACEUTICAL INDUSTRIES LTD-2018US-172836

PATIENT
  Age: 6 Year
  Sex: Female

DRUGS (5)
  1. COLCHICINE. [Interacting]
     Active Substance: COLCHICINE
     Indication: FAMILIAL MEDITERRANEAN FEVER
     Dosage: 0.3 MG, BID
     Route: 048
  2. PREDNISONE. [Interacting]
     Active Substance: PREDNISONE
     Indication: HODGKIN^S DISEASE
     Dosage: 60 MG/M2, DAILY, DAYS 1-15
     Route: 048
  3. DOXORUBICIN [Suspect]
     Active Substance: DOXORUBICIN
     Indication: HODGKIN^S DISEASE
     Dosage: 40 MG/M2 IV DAYS 1 AND 15
     Route: 042
  4. VINCRISTINE [Interacting]
     Active Substance: VINCRISTINE
     Indication: HODGKIN^S DISEASE
     Dosage: 1.5 MG/M2/DOSE IV DAYS 1, 8 AND 15
     Route: 042
  5. ETOPOSIDE. [Interacting]
     Active Substance: ETOPOSIDE
     Indication: HODGKIN^S DISEASE
     Dosage: 125 MG/M2/DOSE IV DAYS 1-5
     Route: 042

REACTIONS (4)
  - Febrile neutropenia [Unknown]
  - Bone marrow failure [Unknown]
  - Abdominal pain [Unknown]
  - Drug interaction [Unknown]
